FAERS Safety Report 8483337-9 (Version None)
Quarter: 2012Q3

REPORT INFORMATION
  Report Type: 
  Country: None (occurrence: None)
  Receive Date: 20120702
  Receipt Date: 20120628
  Transmission Date: 20120928
  Serious: No
  Sender: FDA-Public Use
  Company Number: US-PFIZER INC-2012060625

PATIENT
  Sex: Female

DRUGS (5)
  1. AMBIEN [Concomitant]
     Dosage: 10 MG, UNK
  2. VISTARIL [Concomitant]
     Dosage: 50 MG, 3X/DAY
     Route: 048
     Dates: start: 20111213
  3. TRAZODONE [Concomitant]
     Indication: INSOMNIA
     Dosage: 50MG, 1/2-1 TABLET AT BEDTIME
     Route: 048
     Dates: start: 20120605
  4. GEODON [Suspect]
     Indication: MENTAL DISORDER
  5. GEODON [Suspect]
     Indication: BIPOLAR DISORDER
     Dosage: 40 MG, 2X/DAY
     Route: 048

REACTIONS (1)
  - NO ADVERSE EVENT [None]
